FAERS Safety Report 4391944-8 (Version None)
Quarter: 2004Q3

REPORT INFORMATION
  Report Type: 
  Country: None (occurrence: None)
  Receive Date: 20040701
  Receipt Date: 20040610
  Transmission Date: 20050211
  Serious: Yes (Other)
  Sender: FDA-Public Use
  Company Number: USA030126470

PATIENT
  Age: 79 Year
  Sex: Female
  Weight: 70 kg

DRUGS (20)
  1. FORTEO [Suspect]
     Indication: OSTEOPOROSIS
     Dosage: 20 UG/1 DAY
     Dates: start: 20030110
  2. CELEBREX [Concomitant]
  3. VITAMIN D [Concomitant]
  4. VITAMIN B13 [Concomitant]
  5. CALCIUM [Concomitant]
  6. ATIVAN [Concomitant]
  7. TIAZAC [Concomitant]
  8. PREVACID [Concomitant]
  9. COUMADIN [Concomitant]
  10. ACIPHEX [Concomitant]
  11. VITAMIN B-12 [Concomitant]
  12. MULTIVITAMIN [Concomitant]
  13. ZINC [Concomitant]
  14. AMBIEN [Concomitant]
  15. CALTRATE (CALCIUM CARBONATE) [Concomitant]
  16. VITAMIN C [Concomitant]
  17. VITAMIN B COMPLEX CAP [Concomitant]
  18. MAGNESIUM [Concomitant]
  19. CITRACAL (CALCIUM CITRATE) [Concomitant]
  20. OCUVITE [Concomitant]

REACTIONS (24)
  - ANOREXIA [None]
  - ARTHRITIS [None]
  - BACK INJURY [None]
  - BONE PAIN [None]
  - CATARACT [None]
  - CONTUSION [None]
  - DIARRHOEA [None]
  - DIZZINESS [None]
  - EPISTAXIS [None]
  - FATIGUE [None]
  - FEELING ABNORMAL [None]
  - FLATULENCE [None]
  - GROIN PAIN [None]
  - HEADACHE [None]
  - INJECTION SITE HAEMORRHAGE [None]
  - MEMORY IMPAIRMENT [None]
  - MUSCLE CRAMP [None]
  - NERVOUSNESS [None]
  - PAIN [None]
  - PAIN IN EXTREMITY [None]
  - PHARMACEUTICAL PRODUCT COMPLAINT [None]
  - PYREXIA [None]
  - URINARY BLADDER HAEMORRHAGE [None]
  - WEIGHT DECREASED [None]
